FAERS Safety Report 19130652 (Version 1)
Quarter: 2021Q2

REPORT INFORMATION
  Report Type: Spontaneous
  Country: NL (occurrence: NL)
  Receive Date: 20210414
  Receipt Date: 20210414
  Transmission Date: 20210717
  Serious: Yes (Other)
  Sender: FDA-Public Use
  Company Number: NL-CELLTRION INC.-2021NL004631

PATIENT

DRUGS (8)
  1. RIBAVIRIN. [Suspect]
     Active Substance: RIBAVIRIN
     Indication: HEPATITIS C
     Dosage: UNK
     Route: 065
  2. SOFOSBUVIR [Concomitant]
     Active Substance: SOFOSBUVIR
     Dosage: UNK
  3. PREDNISOLONE. [Suspect]
     Active Substance: PREDNISOLONE
     Indication: CRYOGLOBULINAEMIA
     Dosage: 1 MG/KG
     Route: 065
  4. RITUXIMAB (UNKNOWN) [Suspect]
     Active Substance: RITUXIMAB
     Indication: CRYOGLOBULINAEMIA
     Dosage: UNK
     Route: 065
  5. MYCOPHENOLATE MOFETIL. [Suspect]
     Active Substance: MYCOPHENOLATE MOFETIL
     Indication: CRYOGLOBULINAEMIA
     Dosage: UNK
     Route: 065
  6. PIBRENTASVIR [Concomitant]
     Active Substance: PIBRENTASVIR
     Dosage: UNK
  7. GLECAPREVIR [Concomitant]
     Active Substance: GLECAPREVIR
     Dosage: UNK
  8. DACLATASVIR. [Concomitant]
     Active Substance: DACLATASVIR
     Dosage: UNK

REACTIONS (4)
  - Conjunctivitis [Unknown]
  - Off label use [Unknown]
  - Fatigue [Unknown]
  - Hepatitis C [Recovered/Resolved with Sequelae]
